FAERS Safety Report 6600120-7 (Version None)
Quarter: 2010Q1

REPORT INFORMATION
  Report Type: 
  Country: None (occurrence: None)
  Receive Date: 20100224
  Receipt Date: 20100216
  Transmission Date: 20100710
  Serious: Yes (Disabling)
  Sender: FDA-Public Use
  Company Number: GXKR2009GB06758

PATIENT
  Age: 51 Year
  Weight: 80 kg

DRUGS (6)
  1. SIMVASTATIN [Suspect]
     Indication: DIABETES MELLITUS
     Dosage: 20 MG
     Route: 048
     Dates: start: 20080320, end: 20090220
  2. ACETYLSALICYLIC ACID [Concomitant]
     Indication: TYPE 1 DIABETES MELLITUS
     Dosage: 75 MG
     Route: 048
     Dates: start: 20030101
  3. ACETYLSALICYLIC ACID [Concomitant]
     Indication: TRANSIENT ISCHAEMIC ATTACK
  4. HUMALOG [Concomitant]
  5. LANTUS [Concomitant]
  6. VIAGRA [Concomitant]
     Dosage: 50 MG, 4/ 2 WEEK
     Route: 048
     Dates: start: 20010101

REACTIONS (4)
  - BLOOD CREATINE PHOSPHOKINASE INCREASED [None]
  - MEMORY IMPAIRMENT [None]
  - MUSCULOSKELETAL PAIN [None]
  - MYALGIA [None]
